FAERS Safety Report 23986517 (Version 1)
Quarter: 2024Q2

REPORT INFORMATION
  Report Type: Spontaneous
  Country: US (occurrence: US)
  Receive Date: 20240618
  Receipt Date: 20240618
  Transmission Date: 20240716
  Serious: Yes (Hospitalization)
  Sender: FDA-Public Use
  Company Number: US-AMRYT PHARMACEUTICALS DAC-AEGR006844

PATIENT
  Age: 65 Year
  Sex: Female

DRUGS (11)
  1. MYCAPSSA [Suspect]
     Active Substance: OCTREOTIDE
     Indication: Acromegaly
     Dosage: 20 MILLIGRAM
     Route: 048
     Dates: start: 20221013
  2. MYCAPSSA [Suspect]
     Active Substance: OCTREOTIDE
     Indication: Gigantism
     Dosage: 20 MILLIGRAM, BID
     Route: 048
  3. POTASSIUM [Concomitant]
     Active Substance: POTASSIUM
     Indication: Product used for unknown indication
  4. VITAMIN D3 [Concomitant]
     Active Substance: CHOLECALCIFEROL
     Indication: Product used for unknown indication
  5. CALCIUM [Concomitant]
     Active Substance: CALCIUM
     Indication: Product used for unknown indication
  6. VITAMIN C [Concomitant]
     Active Substance: ASCORBIC ACID
     Indication: Product used for unknown indication
  7. MELATONIN [Concomitant]
     Active Substance: MELATONIN
     Indication: Product used for unknown indication
     Dosage: 3 MILLIGRAM
  8. DOXYLAMINE SUCCINATE\PYRIDOXINE HYDROCHLORIDE [Concomitant]
     Active Substance: DOXYLAMINE SUCCINATE\PYRIDOXINE HYDROCHLORIDE
     Indication: Product used for unknown indication
     Dosage: 12.5 MILLIGRAM
  9. ESCITALOPRAM [Concomitant]
     Active Substance: ESCITALOPRAM OXALATE
     Indication: Product used for unknown indication
     Dosage: UNK
  10. ZINC [Concomitant]
     Active Substance: PYRITHIONE ZINC\ZINC\ZINC CHLORIDE
     Indication: Product used for unknown indication
     Dosage: UNK
  11. LACTOBACILLUS ACIDOPHILUS [Concomitant]
     Active Substance: LACTOBACILLUS ACIDOPHILUS
     Indication: Product used for unknown indication
     Dosage: UNK

REACTIONS (23)
  - Tachycardia [Unknown]
  - Presyncope [Unknown]
  - Chest pain [Unknown]
  - Blood pressure decreased [Unknown]
  - Hepatic pain [Unknown]
  - Depressed mood [Unknown]
  - Tremor [Unknown]
  - Feeling cold [Unknown]
  - Malaise [Unknown]
  - Dizziness [Unknown]
  - Nausea [Recovering/Resolving]
  - Headache [Unknown]
  - Abdominal pain upper [Recovering/Resolving]
  - Pain [Unknown]
  - Back pain [Unknown]
  - Hyperhidrosis [Unknown]
  - Arthralgia [Unknown]
  - Diarrhoea [Recovering/Resolving]
  - Heart rate irregular [Unknown]
  - Fatigue [Unknown]
  - Vomiting [Unknown]
  - Asthenia [Unknown]
  - Product dose omission issue [Unknown]

NARRATIVE: CASE EVENT DATE: 20240104
